FAERS Safety Report 11657669 (Version 3)
Quarter: 2015Q4

REPORT INFORMATION
  Report Type: Report from Study
  Country: US (occurrence: US)
  Receive Date: 20151023
  Receipt Date: 20151027
  Transmission Date: 20160304
  Serious: No
  Sender: FDA-Public Use
  Company Number: US-ABBVIE-14P-163-1327976-00

PATIENT
  Sex: Female
  Weight: 81.72 kg

DRUGS (8)
  1. PHENERGAN [Concomitant]
     Active Substance: PROMETHAZINE HYDROCHLORIDE
     Indication: NAUSEA
  2. COLACE [Concomitant]
     Active Substance: DOCUSATE SODIUM
     Indication: CONSTIPATION PROPHYLAXIS
  3. HYDROXYPAM [Concomitant]
     Active Substance: HYDROXYZINE PAMOATE
     Indication: MIGRAINE
  4. BUTAPACAF [Concomitant]
     Indication: MIGRAINE
  5. TRAZODONE [Concomitant]
     Active Substance: TRAZODONE HYDROCHLORIDE
     Indication: INSOMNIA
  6. ZOFRAN [Concomitant]
     Active Substance: ONDANSETRON HYDROCHLORIDE
     Indication: NAUSEA
  7. LUPRON DEPOT [Suspect]
     Active Substance: LEUPROLIDE ACETATE
     Indication: ENDOMETRIOSIS
     Route: 030
     Dates: start: 201409
  8. NORETHINDRONE. [Concomitant]
     Active Substance: NORETHINDRONE
     Indication: UNEVALUABLE EVENT
     Dates: start: 201409

REACTIONS (1)
  - Abdominal pain [Not Recovered/Not Resolved]
